FAERS Safety Report 8550729-9 (Version None)
Quarter: 2012Q3

REPORT INFORMATION
  Report Type: 
  Country: None (occurrence: None)
  Receive Date: 20120730
  Receipt Date: 20120724
  Transmission Date: 20120928
  Serious: Yes (Death, Life-Threatening, Hospitalization)
  Sender: FDA-Public Use
  Company Number: FR-PFIZER INC-2012102083

PATIENT
  Age: 15 Year
  Sex: Female
  Weight: 55 kg

DRUGS (5)
  1. SOLU-MEDROL [Concomitant]
     Indication: PREMEDICATION
     Dosage: 55 MG, 1X/DAY
     Route: 042
     Dates: start: 20120423, end: 20120423
  2. BACTRIM [Concomitant]
     Indication: PROPHYLAXIS
     Dosage: 800 MG, 3 TIME A WEEK
     Route: 048
  3. ATGAM [Suspect]
     Indication: BONE MARROW FAILURE
     Dosage: 2150 MG A DAY
     Route: 042
     Dates: start: 20120423
  4. POLARAMINE [Concomitant]
     Indication: PREMEDICATION
     Dosage: 5 MG, 1X/DAY
     Route: 042
     Dates: start: 20120423, end: 20120423
  5. FUNGIZONE [Concomitant]
     Indication: PROPHYLAXIS
     Dosage: UNK
     Route: 048

REACTIONS (9)
  - HAEMOPTYSIS [None]
  - URTICARIA [None]
  - BRONCHOPULMONARY ASPERGILLOSIS [None]
  - ANAPHYLACTIC SHOCK [None]
  - HAEMODYNAMIC INSTABILITY [None]
  - DYSPNOEA [None]
  - CHEST PAIN [None]
  - HYPOTENSION [None]
  - TACHYPNOEA [None]
